FAERS Safety Report 7588721-3 (Version None)
Quarter: 2011Q3

REPORT INFORMATION
  Report Type: 
  Country: None (occurrence: None)
  Receive Date: 20110705
  Receipt Date: 20110629
  Transmission Date: 20111222
  Serious: Yes (Hospitalization)
  Sender: FDA-Public Use
  Company Number: IT-B.I. PHARMACEUTICALS,INC./RIDGEFIELD-2011-BP-16778YA

PATIENT
  Sex: Male

DRUGS (2)
  1. CHINOPLUS (PRULIFLOXACIN) [Suspect]
     Dosage: 600 MG
     Route: 048
     Dates: start: 20110601, end: 20110612
  2. TAMSULOSIN HCL [Suspect]
     Dosage: 4 MG
     Route: 048
     Dates: start: 20110601, end: 20110612

REACTIONS (3)
  - BLISTER [None]
  - SKIN EXFOLIATION [None]
  - ERYTHEMA [None]
